FAERS Safety Report 7422076-X (Version None)
Quarter: 2011Q2

REPORT INFORMATION
  Report Type: 
  Country: None (occurrence: None)
  Receive Date: 20110418
  Receipt Date: 20091130
  Transmission Date: 20111010
  Serious: Yes (Other)
  Sender: FDA-Public Use
  Company Number: DE-GENENTECH-316866

PATIENT
  Age: 61 Year
  Sex: Female

DRUGS (1)
  1. LUCENTIS [Suspect]
     Indication: MACULAR DEGENERATION
     Route: 031

REACTIONS (12)
  - NAUSEA [None]
  - MYOCARDIAL INFARCTION [None]
  - GASTROENTERITIS VIRAL [None]
  - VOMITING [None]
  - HYPERSENSITIVITY [None]
  - EYE SWELLING [None]
  - DRUG HYPERSENSITIVITY [None]
  - MALAISE [None]
  - LUNG INFECTION [None]
  - BLOOD PRESSURE ABNORMAL [None]
  - PSORIASIS [None]
  - EYE HAEMORRHAGE [None]
